FAERS Safety Report 7946215-7 (Version None)
Quarter: 2011Q4

REPORT INFORMATION
  Report Type: 
  Country: None (occurrence: None)
  Receive Date: 20111129
  Receipt Date: 20111123
  Transmission Date: 20120403
  Serious: Yes (Death, Life-Threatening, Hospitalization)
  Sender: FDA-Public Use
  Company Number: GR-CELGENEUS-066-C5013-11092476

PATIENT
  Sex: Male
  Weight: 68 kg

DRUGS (14)
  1. DEXAMETHASONE [Suspect]
     Indication: MULTIPLE MYELOMA
     Dosage: 40 MILLIGRAM
     Route: 065
     Dates: start: 20101110
  2. VALSARTAN [Concomitant]
     Indication: HYPERTENSION
     Dosage: 160 MILLIGRAM
     Route: 048
     Dates: start: 20090101, end: 20111012
  3. DEXAMETHASONE [Suspect]
     Dosage: 40 MILLIGRAM
     Route: 065
     Dates: start: 20110905, end: 20110919
  4. VALACYCLOVIR [Concomitant]
     Dosage: 500 MILLIGRAM
     Route: 048
     Dates: start: 20101110, end: 20111012
  5. ALLOPURINOL [Concomitant]
     Dosage: 100 MILLIGRAM
     Route: 048
     Dates: start: 20090101, end: 20111012
  6. HALOPERIDOL [Concomitant]
     Indication: EPILEPSY
     Dosage: 6 MILLIGRAM
     Route: 048
     Dates: start: 20110919, end: 20110928
  7. FONDAPARINUX SODIUM [Concomitant]
     Indication: THROMBOSIS PROPHYLAXIS
     Dosage: 2.5 MILLIGRAM
     Route: 050
     Dates: start: 20110923, end: 20110924
  8. LENALIDOMIDE [Suspect]
     Indication: MULTIPLE MYELOMA
     Dosage: 10 MILLIGRAM
     Route: 048
     Dates: start: 20101110
  9. LENALIDOMIDE [Suspect]
     Dosage: 5 MILLIGRAM
     Route: 048
     Dates: start: 20110905, end: 20110919
  10. ASPIRIN [Concomitant]
     Dosage: 100 MILLIGRAM
     Route: 048
     Dates: start: 20101110, end: 20111012
  11. AMLODIPINE [Concomitant]
     Dosage: 5 MILLIGRAM
     Route: 048
     Dates: start: 20110923, end: 20110928
  12. FONDAPARINUX SODIUM [Concomitant]
     Dosage: 2.5 MILLIGRAM
     Route: 050
     Dates: start: 20110927, end: 20110927
  13. AMLODIPINE [Concomitant]
     Indication: HYPERTENSION
     Dosage: 5 MILLIGRAM
     Route: 048
     Dates: start: 20090101, end: 20111012
  14. VALSARTAN [Concomitant]
     Dosage: 160 MILLIGRAM
     Route: 048
     Dates: start: 20110923, end: 20110928

REACTIONS (8)
  - LUNG SQUAMOUS CELL CARCINOMA STAGE UNSPECIFIED [None]
  - HYPOALBUMINAEMIA [None]
  - ATRIAL FIBRILLATION [None]
  - HYPERCALCAEMIA [None]
  - SEPSIS [None]
  - LOWER RESPIRATORY TRACT INFECTION [None]
  - RESPIRATORY TRACT INFECTION [None]
  - TRANSAMINASES INCREASED [None]
